FAERS Safety Report 21036896 (Version 1)
Quarter: 2022Q3

REPORT INFORMATION
  Report Type: Other
  Country: GB (occurrence: GB)
  Receive Date: 20220702
  Receipt Date: 20220702
  Transmission Date: 20221027
  Serious: Yes (Other)
  Sender: FDA-Public Use
  Company Number: None

PATIENT
  Age: 33 Year
  Sex: Male
  Weight: 82 kg

DRUGS (2)
  1. GABAPENTIN [Suspect]
     Active Substance: GABAPENTIN
     Indication: Product used for unknown indication
     Dosage: UNK (3X 300MG )
     Route: 065
  2. GABAPENTIN [Suspect]
     Active Substance: GABAPENTIN
     Dosage: UNK (1X 300MG) (DOSE REDUCED)
     Route: 065

REACTIONS (13)
  - Aphasia [Recovered/Resolved]
  - Abnormal dreams [Recovered/Resolved]
  - Medication error [Unknown]
  - Anger [Recovered/Resolved]
  - Red ear syndrome [Recovered/Resolved]
  - Flatulence [Recovered/Resolved]
  - Increased appetite [Recovered/Resolved]
  - Lymphadenopathy [Recovered/Resolved]
  - Hypersensitivity [Unknown]
  - Amnesia [Recovered/Resolved]
  - Peripheral swelling [Recovered/Resolved]
  - Vision blurred [Recovered/Resolved]
  - Cognitive disorder [Recovered/Resolved]

NARRATIVE: CASE EVENT DATE: 20170401
